FAERS Safety Report 6731208-8 (Version None)
Quarter: 2010Q2

REPORT INFORMATION
  Report Type: 
  Country: None (occurrence: None)
  Receive Date: 20100518
  Receipt Date: 20100512
  Transmission Date: 20101027
  Serious: Yes (Hospitalization)
  Sender: FDA-Public Use
  Company Number: FR-ABBOTT-10P-056-0643859-00

PATIENT
  Sex: Male

DRUGS (10)
  1. SEVOFLURANE [Suspect]
     Indication: INDUCTION OF ANAESTHESIA
     Dates: start: 20100312, end: 20100312
  2. PERFALGAN [Suspect]
     Indication: PAIN
     Route: 042
     Dates: start: 20100312, end: 20100312
  3. PROFENID [Suspect]
     Indication: PAIN
     Route: 042
     Dates: start: 20100312, end: 20100312
  4. ATROPINE SULFATE [Suspect]
     Indication: BRADYCARDIA
     Route: 042
     Dates: start: 20100312, end: 20100312
  5. ALFUZOSIN HCL [Suspect]
     Indication: BENIGN PROSTATIC HYPERPLASIA
     Route: 048
  6. PROPOFOL [Suspect]
     Indication: INDUCTION OF ANAESTHESIA
     Route: 042
     Dates: start: 20100312, end: 20100312
  7. SUFENTA PRESERVATIVE FREE [Suspect]
     Indication: INDUCTION OF ANAESTHESIA
     Route: 042
     Dates: start: 20100312, end: 20100312
  8. DROPERIDOL [Suspect]
     Indication: DRUG USE FOR UNKNOWN INDICATION
     Route: 042
     Dates: start: 20100312, end: 20100312
  9. CEFUROXIME [Suspect]
     Indication: ANTIBIOTIC PROPHYLAXIS
     Route: 042
     Dates: start: 20100312, end: 20100312
  10. MIDAZOLAM HCL [Suspect]
     Indication: ANAESTHETIC PREMEDICATION
     Route: 042
     Dates: start: 20100312, end: 20100312

REACTIONS (2)
  - ERYTHEMA [None]
  - LIP OEDEMA [None]
